FAERS Safety Report 4660984-3 (Version None)
Quarter: 2005Q2

REPORT INFORMATION
  Report Type: 
  Country: None (occurrence: None)
  Receive Date: 20050511
  Receipt Date: 20050428
  Transmission Date: 20051028
  Serious: Yes (Hospitalization)
  Sender: FDA-Public Use
  Company Number: 2005067458

PATIENT
  Sex: Female

DRUGS (8)
  1. BEXTRA [Suspect]
     Indication: RHEUMATOID ARTHRITIS
     Dosage: 10 MG (10 MG, 1 IN 1 D), ORAL
     Route: 048
     Dates: start: 20010101
  2. PREDNISONE [Suspect]
     Indication: RHEUMATOID ARTHRITIS
     Dosage: 80 MG (80 MG, 1 IN 1 D), ORAL
     Route: 048
     Dates: start: 19970101
  3. PHENTERMINE [Suspect]
     Indication: WEIGHT DECREASED
     Dates: start: 20050201
  4. ENBREL [Concomitant]
  5. METHOTREXATE [Concomitant]
  6. FOLATE       (FOLIC ACID) [Concomitant]
  7. NEXIUM [Concomitant]
  8. NEURONTIN [Concomitant]

REACTIONS (18)
  - ARTHROPATHY [None]
  - ASTHMA [None]
  - BODY HEIGHT DECREASED [None]
  - BONE DISORDER [None]
  - COMPRESSION FRACTURE [None]
  - DIFFICULTY IN WALKING [None]
  - DYSPNOEA [None]
  - FALL [None]
  - FATIGUE [None]
  - FEELING ABNORMAL [None]
  - GAIT DISTURBANCE [None]
  - INCORRECT DOSE ADMINISTERED [None]
  - JOINT STIFFNESS [None]
  - KNEE ARTHROPLASTY [None]
  - NERVOUSNESS [None]
  - OSTEOPOROSIS [None]
  - PAIN [None]
  - WEIGHT INCREASED [None]
